FAERS Safety Report 10651482 (Version 2)
Quarter: 2014Q4

REPORT INFORMATION
  Report Type: Spontaneous
  Country: US (occurrence: US)
  Receive Date: 20141215
  Receipt Date: 20141215
  Transmission Date: 20150529
  Serious: No
  Sender: FDA-Public Use
  Company Number: US-TEVA-519164USA

PATIENT
  Age: 60 Year
  Sex: Female

DRUGS (1)
  1. QUETIAPINE FUMARATE. [Suspect]
     Active Substance: QUETIAPINE FUMARATE
     Indication: BIPOLAR DISORDER
     Dosage: AT NIGHT
     Dates: start: 20141007, end: 20141007

REACTIONS (8)
  - Feeling abnormal [Recovered/Resolved]
  - Appetite disorder [Recovered/Resolved]
  - Depression [Recovered/Resolved]
  - Fear [Recovered/Resolved]
  - Product substitution issue [Recovered/Resolved]
  - Somnolence [Recovered/Resolved]
  - Mood altered [Recovered/Resolved]
  - Hallucination [Recovered/Resolved]

NARRATIVE: CASE EVENT DATE: 20141008
